FAERS Safety Report 16464629 (Version 1)
Quarter: 2019Q2

REPORT INFORMATION
  Report Type: Spontaneous
  Country: DE (occurrence: DE)
  Receive Date: 20190621
  Receipt Date: 20190621
  Transmission Date: 20190711
  Serious: Yes (Other)
  Sender: FDA-Public Use
  Company Number: PHHY2019DE139511

PATIENT
  Age: 33 Year
  Sex: Male

DRUGS (5)
  1. CIPROFLOXACIN. [Suspect]
     Active Substance: CIPROFLOXACIN
     Indication: ORCHITIS NONINFECTIVE
     Dosage: UNK
     Route: 065
  2. AUGMENTAN [Interacting]
     Active Substance: AMOXICILLIN\CLAVULANATE POTASSIUM
     Indication: ORCHITIS NONINFECTIVE
     Dosage: UNK
     Route: 065
  3. OSPOLOT [Concomitant]
     Active Substance: SULTHIAME
     Indication: EPILEPSY
     Dosage: UNK
     Route: 065
  4. VANCOMYCIN [Interacting]
     Active Substance: VANCOMYCIN
     Indication: ORCHITIS NONINFECTIVE
     Dosage: UNK
     Route: 065
  5. ORFIRIL [Interacting]
     Active Substance: VALPROATE SODIUM
     Indication: EPILEPSY
     Dosage: 300 MG, Q12H
     Route: 065

REACTIONS (3)
  - Therapeutic product effect decreased [Unknown]
  - Seizure [Unknown]
  - Drug interaction [Unknown]
